FAERS Safety Report 11792549 (Version 4)
Quarter: 2016Q3

REPORT INFORMATION
  Report Type: Report from Study
  Country: CA (occurrence: CA)
  Receive Date: 20151202
  Receipt Date: 20160815
  Transmission Date: 20161109
  Serious: Yes (Hospitalization, Other)
  Sender: FDA-Public Use
  Company Number: CA-BEH-2015056142

PATIENT
  Age: 29 Year
  Sex: Female
  Weight: 58.97 kg

DRUGS (5)
  1. ENDOCORT [Concomitant]
  2. HIZENTRA [Suspect]
     Active Substance: HUMAN IMMUNOGLOBULIN G
     Indication: POSTURAL ORTHOSTATIC TACHYCARDIA SYNDROME
     Dosage: 40 G, QW
     Route: 058
     Dates: start: 20150305
  3. HIZENTRA [Suspect]
     Active Substance: HUMAN IMMUNOGLOBULIN G
     Dosage: 20 MG, UNK
     Route: 058
  4. HIZENTRA [Suspect]
     Active Substance: HUMAN IMMUNOGLOBULIN G
     Dosage: 10 MG, UNK
     Route: 058
     Dates: start: 20160527
  5. MYCOPHENOLIC ACID. [Concomitant]
     Active Substance: MYCOPHENOLIC ACID
     Route: 065

REACTIONS (11)
  - Intentional product use issue [Unknown]
  - Infertility [Recovering/Resolving]
  - Weight decreased [Unknown]
  - Autoimmune hepatitis [Recovering/Resolving]
  - Pancreatitis [Unknown]
  - Pancreatitis [Unknown]
  - Kidney infection [Recovered/Resolved]
  - Hepatitis acute [Unknown]
  - Amenorrhoea [Recovering/Resolving]
  - Blood urine present [Recovered/Resolved]
  - Hepatic enzyme increased [Recovering/Resolving]

NARRATIVE: CASE EVENT DATE: 201509
